FAERS Safety Report 8660895 (Version 3)
Quarter: 2015Q2

REPORT INFORMATION
  Report Type: Report from Study
  Country: IE (occurrence: IE)
  Receive Date: 20120711
  Receipt Date: 20150424
  Transmission Date: 20150821
  Serious: Yes (Other)
  Sender: FDA-Public Use
  Company Number: PHHY2012IE058186

PATIENT
  Age: 53 Year
  Sex: Male
  Weight: 128 kg

DRUGS (8)
  1. NEORAL [Suspect]
     Active Substance: CYCLOSPORINE
     Dosage: 1.5-2.5 MG DAILY
     Route: 065
     Dates: start: 200906, end: 200910
  2. PSORALEN [Concomitant]
     Active Substance: PSORALEN
     Indication: PSORIATIC ARTHROPATHY
     Route: 065
  3. HUMIRA [Suspect]
     Active Substance: ADALIMUMAB
     Indication: PSORIASIS
     Dosage: 40 MG, QW
     Route: 058
     Dates: start: 20100517, end: 20101026
  4. RAPTIVA [Suspect]
     Active Substance: EFALIZUMAB
     Indication: PSORIASIS
     Dosage: 1.3 ML, QW
     Route: 058
     Dates: start: 200804, end: 200904
  5. FUMADERM [Suspect]
     Active Substance: DIMETHYL FUMARATE\ETHYL FUMARATE
     Indication: PSORIASIS
     Dosage: 120 MG, TID
     Route: 065
     Dates: start: 200705, end: 200801
  6. NEORAL [Suspect]
     Active Substance: CYCLOSPORINE
     Indication: PSORIASIS
     Dosage: 0.5 MG, QD
     Route: 065
     Dates: start: 200706, end: 200806
  7. METHOTREXATE [Suspect]
     Active Substance: METHOTREXATE
     Indication: PSORIASIS
     Dosage: 25 TO 35 MG ONCE WEEKLY
     Route: 065
     Dates: start: 200507, end: 200705
  8. ENBREL [Suspect]
     Active Substance: ETANERCEPT
     Indication: PSORIASIS
     Dosage: 50 MG, BIW
     Route: 065
     Dates: start: 20090430, end: 201005

REACTIONS (4)
  - Malignant melanoma [Recovered/Resolved]
  - Nodule [Unknown]
  - Nodular melanoma [Unknown]
  - Haemorrhage [Unknown]

NARRATIVE: CASE EVENT DATE: 2010
